FAERS Safety Report 4277037-9 (Version None)
Quarter: 2004Q1

REPORT INFORMATION
  Report Type: 
  Country: None (occurrence: None)
  Receive Date: 20040120
  Receipt Date: 20040112
  Transmission Date: 20041129
  Serious: Yes (Other)
  Sender: FDA-Public Use
  Company Number: GBWYE509414JAN04

PATIENT
  Age: 43 Year
  Sex: Male

DRUGS (8)
  1. ADVIL [Suspect]
  2. CANNABIS (CANNABIS) [Suspect]
  3. COMBIVIR [Suspect]
     Indication: HIV INFECTION
     Dosage: 450 MG 2X PER 1 DAY ORAL
     Route: 048
     Dates: start: 20000201
  4. VIRAMUNE [Suspect]
     Indication: HIV INFECTION
     Dosage: 400 MG 1X PER 1 DAY ORAL
     Route: 048
     Dates: start: 19980101
  5. VIOXX [Concomitant]
  6. SALBUTAMOL (SALBUTAMOL) [Concomitant]
  7. SERETIDE (SALMETEROL/FLUTICASONE) [Concomitant]
  8. UNSPECIFIED ANTIDEPRESSANT (UNSPECIFIED ANTIDEPRESSANT) [Concomitant]

REACTIONS (2)
  - OPTIC NEUROPATHY [None]
  - PHOTOPSIA [None]
